FAERS Safety Report 4635106-5 (Version None)
Quarter: 2005Q2

REPORT INFORMATION
  Report Type: 
  Country: None (occurrence: None)
  Receive Date: 20050414
  Receipt Date: 20050404
  Transmission Date: 20051028
  Serious: Yes (Hospitalization, Other)
  Sender: FDA-Public Use
  Company Number: SE-BRISTOL-MYERS SQUIBB COMPANY-12928792

PATIENT
  Age: 65 Year
  Sex: Female

DRUGS (6)
  1. SENDOXAN [Suspect]
     Indication: VASCULITIS
     Dates: start: 20010601, end: 20011201
  2. SENDOXAN [Suspect]
     Indication: POLYNEUROPATHY
     Dates: start: 20010601, end: 20011201
  3. PREDNISOLONE [Suspect]
     Indication: VASCULITIS
  4. PREDNISOLONE [Suspect]
     Indication: POLYNEUROPATHY
  5. IMUREL [Suspect]
     Indication: VASCULITIS
     Dates: start: 20011201
  6. IMUREL [Suspect]
     Indication: POLYNEUROPATHY
     Dates: start: 20011201

REACTIONS (7)
  - AGRANULOCYTOSIS [None]
  - HEPATIC ENZYME INCREASED [None]
  - HEPATITIS B [None]
  - LUNG DISORDER [None]
  - PLEURISY [None]
  - PNEUMONIA [None]
  - RESPIRATORY TRACT INFECTION [None]
